FAERS Safety Report 4277794-1 (Version None)
Quarter: 2004Q1

REPORT INFORMATION
  Report Type: 
  Country: None (occurrence: None)
  Receive Date: 20040121
  Receipt Date: 20030325
  Transmission Date: 20041129
  Serious: Yes (Life-Threatening)
  Sender: FDA-Public Use
  Company Number: 2003-02-1638

PATIENT
  Sex: Female
  Weight: 50 kg

DRUGS (2)
  1. DOXEPIN HCL [Suspect]
     Indication: DEPRESSION
     Dosage: 100 MG ORAL
     Route: 048
     Dates: start: 20020301
  2. SUBUTEX [Suspect]
     Indication: POLYSUBSTANCE DEPENDENCE
     Dosage: 8-24 MG QD SUBLINGUAL
     Route: 060
     Dates: start: 20020622, end: 20021213

REACTIONS (2)
  - INTENTIONAL OVERDOSE [None]
  - SUICIDE ATTEMPT [None]
